FAERS Safety Report 26189157 (Version 1)
Quarter: 2025Q4

REPORT INFORMATION
  Report Type: Spontaneous
  Country: US (occurrence: US)
  Receive Date: 20251223
  Receipt Date: 20251223
  Transmission Date: 20260118
  Serious: No
  Sender: Thea Pharma
  Company Number: US-THEA-2025002750

PATIENT
  Sex: Female

DRUGS (1)
  1. IYUZEH [Suspect]
     Active Substance: LATANOPROST
     Indication: Glaucoma
     Dosage: EVERY NIGHT
     Route: 047

REACTIONS (2)
  - Multiple use of single-use product [Unknown]
  - No adverse event [Unknown]
